FAERS Safety Report 9454948 (Version 1)
Quarter: 2013Q1

REPORT INFORMATION
  Report Type: Spontaneous
  Country: US (occurrence: None)
  Receive Date: 20120412
  Receipt Date: 20120412
  Transmission Date: 20140127
  Serious: Yes (Other)
  Sender: FDA-Public Use
  Company Number: 2012S1000009

PATIENT
  Age: 33 Year
  Sex: Male
  Weight: 103.87 kg

DRUGS (3)
  1. KRYSTEXXA INJECTION [Suspect]
     Indication: GOUT
     Route: 042
     Dates: start: 20111219, end: 20120105
  2. BENADRYL [Concomitant]
  3. SOLUMEDROL [Concomitant]

REACTIONS (2)
  - Infusion related reaction [None]
  - Drug ineffective [None]
